FAERS Safety Report 13428289 (Version 4)
Quarter: 2017Q3

REPORT INFORMATION
  Report Type: Spontaneous
  Country: BR (occurrence: BR)
  Receive Date: 20170411
  Receipt Date: 20170830
  Transmission Date: 20171127
  Serious: Yes (Hospitalization, Other)
  Sender: FDA-Public Use
  Company Number: BR-PFIZER INC-2017153789

PATIENT
  Age: 39 Year
  Sex: Female

DRUGS (1)
  1. DOSTINEX [Suspect]
     Active Substance: CABERGOLINE
     Indication: BLOOD PROLACTIN ABNORMAL
     Dosage: 0.5 MG, WEEKLY (1 TABLET PER WEEK (HALF A TABLET IN TWO DAYS))
     Dates: start: 2009

REACTIONS (19)
  - Tremor [Recovered/Resolved]
  - Headache [Not Recovered/Not Resolved]
  - Leiomyoma [Recovered/Resolved]
  - Thirst [Not Recovered/Not Resolved]
  - Sleep disorder [Not Recovered/Not Resolved]
  - Pituitary tumour [Not Recovered/Not Resolved]
  - Feeling abnormal [Recovered/Resolved]
  - Alopecia [Not Recovered/Not Resolved]
  - Malaise [Recovered/Resolved]
  - Skin disorder [Not Recovered/Not Resolved]
  - Fear [Recovered/Resolved]
  - Dizziness [Recovered/Resolved]
  - Pollakiuria [Not Recovered/Not Resolved]
  - Hyperhidrosis [Not Recovered/Not Resolved]
  - Condition aggravated [Not Recovered/Not Resolved]
  - Anaemia [Recovered/Resolved]
  - Stress [Not Recovered/Not Resolved]
  - Thyroid disorder [Not Recovered/Not Resolved]
  - Menorrhagia [Recovered/Resolved]

NARRATIVE: CASE EVENT DATE: 2009
